FAERS Safety Report 13346589 (Version 1)
Quarter: 2017Q1

REPORT INFORMATION
  Report Type: Spontaneous
  Country: JP (occurrence: JP)
  Receive Date: 20170317
  Receipt Date: 20170317
  Transmission Date: 20170428
  Serious: Yes (Hospitalization)
  Sender: FDA-Public Use
  Company Number: JP-PFIZER INC-2017109648

PATIENT
  Age: 5 Decade
  Sex: Female

DRUGS (2)
  1. LUTORAL [Concomitant]
     Active Substance: CHLORMADINONE ACETATE
     Route: 048
  2. PREMARIN [Suspect]
     Active Substance: ESTROGENS, CONJUGATED
     Route: 048

REACTIONS (1)
  - Enteritis infectious [Unknown]
